FAERS Safety Report 6470719-X (Version None)
Quarter: 2009Q4

REPORT INFORMATION
  Report Type: 
  Country: None (occurrence: None)
  Receive Date: 20091203
  Receipt Date: 20091124
  Transmission Date: 20100525
  Serious: Yes (Hospitalization)
  Sender: FDA-Public Use
  Company Number: A0832890A

PATIENT
  Age: 64 Year
  Sex: Female

DRUGS (1)
  1. AVANDIA [Suspect]
     Dosage: 2MG TWICE PER DAY
     Route: 048
     Dates: start: 19990101, end: 20070101

REACTIONS (2)
  - AMNESIA [None]
  - TRANSIENT ISCHAEMIC ATTACK [None]
